FAERS Safety Report 5518113-X (Version None)
Quarter: 2007Q4

REPORT INFORMATION
  Report Type: 
  Country: None (occurrence: None)
  Receive Date: 20071113
  Receipt Date: 20071106
  Transmission Date: 20080405
  Serious: Yes (Hospitalization)
  Sender: FDA-Public Use
  Company Number: 13972633

PATIENT
  Age: 44 Year
  Sex: Male

DRUGS (5)
  1. REVIA [Suspect]
     Dosage: 50 MILLIGRAM ORAL
     Route: 048
     Dates: start: 20070904
  2. METHADON HCL TAB [Suspect]
     Dosage: 120 MILLIGRAM 1 DAY ORAL
     Route: 048
     Dates: end: 20070904
  3. MIDAZOLAM HCL [Suspect]
     Dosage: 10  MILLIGRAM 1 DAY IV
     Route: 042
     Dates: start: 20070904
  4. AOTAL (ACAMPROSATE) [Suspect]
     Dosage: ORAL
     Route: 048
     Dates: start: 20070904
  5. TRANXENE (CLORAZEPATGE DIPOTASSIUM) [Concomitant]

REACTIONS (7)
  - AGITATION [None]
  - CONFUSIONAL STATE [None]
  - HYPERTENSION [None]
  - HYPOTHERMIA [None]
  - HYPOXIA [None]
  - STRESS CARDIOMYOPATHY [None]
  - SUPRAVENTRICULAR TACHYCARDIA [None]
